FAERS Safety Report 6562374-5 (Version None)
Quarter: 2010Q1

REPORT INFORMATION
  Report Type: 
  Country: None (occurrence: None)
  Receive Date: 20100130
  Receipt Date: 20091120
  Transmission Date: 20100710
  Serious: No
  Sender: FDA-Public Use
  Company Number: US-ABBOTT-09P-163-0608374-00

PATIENT
  Sex: Female
  Weight: 65.83 kg

DRUGS (7)
  1. HUMIRA [Suspect]
     Indication: CROHN'S DISEASE
     Dates: start: 20070101
  2. WELCHOL [Concomitant]
     Indication: BLOOD CHOLESTEROL ABNORMAL
  3. SYNTHROID [Concomitant]
     Indication: HYPOTHYROIDISM
  4. LISINOPRIL [Concomitant]
     Indication: HYPERTENSION
  5. KLOR-CON [Concomitant]
     Indication: BLOOD POTASSIUM DECREASED
  6. VITAMIN B-12 [Concomitant]
     Indication: ANAEMIA
     Route: 050
  7. CALCIUM WITH VITAMIN D [Concomitant]
     Indication: DRUG USE FOR UNKNOWN INDICATION

REACTIONS (5)
  - ERYTHEMA [None]
  - LYMPHADENOPATHY [None]
  - NECK PAIN [None]
  - PRURITUS [None]
  - TINNITUS [None]
